FAERS Safety Report 20941462 (Version 1)
Quarter: 2022Q2

REPORT INFORMATION
  Report Type: Spontaneous
  Country: US (occurrence: US)
  Receive Date: 20220610
  Receipt Date: 20220610
  Transmission Date: 20220720
  Serious: No
  Sender: FDA-Public Use
  Company Number: US-NOVARTISTESTPH-NVSC2022US133214

PATIENT
  Sex: Female

DRUGS (1)
  1. LATANOPROST [Suspect]
     Active Substance: LATANOPROST
     Indication: Product used for unknown indication
     Dosage: UNK, (STOPPED USING IN 2021, BUT NEEDED IT SO TRIED IT AGAIN)
     Route: 065
     Dates: end: 2021

REACTIONS (4)
  - Upper limb fracture [Unknown]
  - Skin exfoliation [Unknown]
  - Dark circles under eyes [Unknown]
  - Drug ineffective [Unknown]
